FAERS Safety Report 15831050 (Version 1)
Quarter: 2019Q1

REPORT INFORMATION
  Report Type: Spontaneous
  Country: HR (occurrence: HR)
  Receive Date: 20190116
  Receipt Date: 20190116
  Transmission Date: 20190417
  Serious: Yes (Other)
  Sender: FDA-Public Use
  Company Number: HR-TEVA-2019-HR-998728

PATIENT
  Sex: Female

DRUGS (1)
  1. PRAXITEN 15 [Suspect]
     Active Substance: OXAZEPAM
     Dosage: 450 MILLIGRAM DAILY;
     Route: 048
     Dates: start: 20181022, end: 20181022

REACTIONS (2)
  - Somnolence [Unknown]
  - Suicide attempt [Unknown]

NARRATIVE: CASE EVENT DATE: 20181022
